FAERS Safety Report 5774388-3 (Version None)
Quarter: 2008Q2

REPORT INFORMATION
  Report Type: 
  Country: None (occurrence: None)
  Receive Date: 20080616
  Receipt Date: 20080604
  Transmission Date: 20081010
  Serious: Yes (Disabling, Other)
  Sender: FDA-Public Use
  Company Number: DK-PFIZER INC-2007088835

PATIENT
  Sex: Male
  Weight: 80 kg

DRUGS (9)
  1. GABAPENTIN [Suspect]
     Indication: PAIN
     Dosage: DAILY DOSE:3000MG
     Route: 048
     Dates: start: 20050309, end: 20071105
  2. GABAPENTIN [Suspect]
     Indication: NEUROPATHY PERIPHERAL
  3. LYRICA [Suspect]
     Indication: PAIN
     Route: 048
     Dates: start: 20050818, end: 20070615
  4. LYRICA [Suspect]
     Indication: NEUROPATHY PERIPHERAL
     Dates: start: 20051101, end: 20070615
  5. ALOPAM [Concomitant]
     Route: 048
  6. RISPERDAL [Concomitant]
  7. AMITRIPTYLINE HCL [Concomitant]
     Route: 048
  8. EFFEXOR [Concomitant]
     Route: 048
  9. ZOLPIDEM TARTRATE [Concomitant]
     Route: 048

REACTIONS (3)
  - GLAUCOMA [None]
  - OPTIC NEUROPATHY [None]
  - VISUAL ACUITY REDUCED [None]
